FAERS Safety Report 6331820-4 (Version None)
Quarter: 2009Q3

REPORT INFORMATION
  Report Type: 
  Country: None (occurrence: None)
  Receive Date: 20090826
  Receipt Date: 20090807
  Transmission Date: 20100115
  Serious: Yes (Other)
  Sender: FDA-Public Use
  Company Number: 2009US-22087

PATIENT
  Age: 18 Year
  Sex: Female

DRUGS (3)
  1. ISOTRETINOIN [Suspect]
     Indication: DRUG USE FOR UNKNOWN INDICATION
     Dosage: 40 MG, BID, ORAL
     Route: 048
     Dates: start: 20090117, end: 20090210
  2. ORAL CONTRACEPTIVE PILLS (ORAL CONTRACEPTIVE PILLS) [Concomitant]
  3. MORNING AFTER PILL (MORNING AFTER PILL) [Concomitant]

REACTIONS (6)
  - ABORTION SPONTANEOUS [None]
  - BLIGHTED OVUM [None]
  - DRUG DOSE OMISSION [None]
  - DRUG EXPOSURE DURING PREGNANCY [None]
  - PREGNANCY WITH CONTRACEPTIVE DEVICE [None]
  - VAGINAL HAEMORRHAGE [None]
